FAERS Safety Report 16226504 (Version 1)
Quarter: 2019Q2

REPORT INFORMATION
  Report Type: Spontaneous
  Country: US (occurrence: US)
  Receive Date: 20190423
  Receipt Date: 20190423
  Transmission Date: 20190711
  Serious: Yes (Other)
  Sender: FDA-Public Use
  Company Number: US-PFIZER INC-2019166477

PATIENT
  Age: 73 Year
  Sex: Female

DRUGS (1)
  1. IBRANCE [Suspect]
     Active Substance: PALBOCICLIB
     Dosage: UNK
     Dates: end: 201902

REACTIONS (12)
  - Tremor [Unknown]
  - Cognitive disorder [Unknown]
  - Intracranial pressure increased [Unknown]
  - Neoplasm progression [Unknown]
  - Hypoacusis [Unknown]
  - Spinal pain [Unknown]
  - Pain [Unknown]
  - Dizziness [Unknown]
  - Brain oedema [Unknown]
  - Headache [Unknown]
  - Gait disturbance [Unknown]
  - Visual impairment [Unknown]
